FAERS Safety Report 20096723 (Version 1)
Quarter: 2021Q4

REPORT INFORMATION
  Report Type: Spontaneous
  Country: US (occurrence: None)
  Receive Date: 20211122
  Receipt Date: 20211122
  Transmission Date: 20220303
  Serious: Yes (Hospitalization)
  Sender: FDA-Public Use
  Company Number: None

PATIENT
  Age: 70 Year
  Sex: Male
  Weight: 92 kg

DRUGS (2)
  1. TRAZODONE HYDROCHLORIDE [Suspect]
     Active Substance: TRAZODONE HYDROCHLORIDE
     Indication: Post-traumatic stress disorder
     Dosage: FREQUENCY : AS NEEDED;?
     Route: 048
     Dates: start: 20210713, end: 20211120
  2. TRAZODONE HYDROCHLORIDE [Suspect]
     Active Substance: TRAZODONE HYDROCHLORIDE
     Indication: Insomnia

REACTIONS (1)
  - Bradycardia [None]

NARRATIVE: CASE EVENT DATE: 20211120
